FAERS Safety Report 8852693 (Version 1)
Quarter: 2012Q4

REPORT INFORMATION
  Report Type: Report from Study
  Country: BE (occurrence: BE)
  Receive Date: 20121022
  Receipt Date: 20121022
  Transmission Date: 20130627
  Serious: Yes (Hospitalization)
  Sender: FDA-Public Use
  Company Number: PHHO2012BE015058

PATIENT
  Age: 49 Year
  Sex: Male
  Weight: 85.8 kg

DRUGS (4)
  1. SOM230 [Suspect]
     Indication: PANCREATIC NEUROENDOCRINE TUMOUR
     Dosage: 60 mg, UNK
     Route: 030
     Dates: start: 20120130
  2. AFINITOR [Suspect]
     Indication: PANCREATIC NEUROENDOCRINE TUMOUR
     Dosage: 10 mg, UNK
     Route: 048
     Dates: start: 20120130
  3. HUMALOG [Concomitant]
     Indication: DIABETES MELLITUS
     Dosage: UNK
     Dates: start: 2010, end: 20121012
  4. LANTUS [Concomitant]
     Indication: DIABETES MELLITUS
     Dosage: 14 Units OD
     Dates: start: 2010, end: 20121012

REACTIONS (1)
  - Blood glucose fluctuation [Recovering/Resolving]
